FAERS Safety Report 11108192 (Version 1)
Quarter: 2015Q2

REPORT INFORMATION
  Report Type: Spontaneous
  Country: US (occurrence: US)
  Receive Date: 20150512
  Receipt Date: 20150512
  Transmission Date: 20150821
  Serious: Yes (Other)
  Sender: FDA-Public Use
  Company Number: US-ELI_LILLY_AND_COMPANY-US201505000247

PATIENT
  Sex: Female

DRUGS (2)
  1. HUMATROPE [Suspect]
     Active Substance: SOMATROPIN
  2. HUMATROPE [Suspect]
     Active Substance: SOMATROPIN
     Indication: ADRENAL DISORDER
     Dosage: 0.3 DF, UNKNOWN
     Route: 065

REACTIONS (2)
  - Adrenocortical insufficiency acute [Unknown]
  - Memory impairment [Unknown]
